FAERS Safety Report 8013779-7 (Version None)
Quarter: 2011Q4

REPORT INFORMATION
  Report Type: 
  Country: None (occurrence: None)
  Receive Date: 20111229
  Receipt Date: 20111226
  Transmission Date: 20120403
  Serious: Yes (Hospitalization, Other)
  Sender: FDA-Public Use
  Company Number: FR-PFIZER INC-2011268847

PATIENT
  Age: 50 Year
  Sex: Male
  Weight: 69 kg

DRUGS (4)
  1. ETRAVIRINE [Suspect]
     Dosage: 100 MG, UNK
     Route: 048
     Dates: start: 20101208
  2. TRUVADA [Suspect]
     Dosage: 200 MG/245 MG, UNK
     Route: 048
     Dates: start: 20101208
  3. INFLUENZA VIRUS VACCINE [Suspect]
     Dosage: 1 DF, SINGLE
     Route: 050
     Dates: start: 20101201, end: 20101201
  4. VARENICLINE TARTRATE [Suspect]
     Indication: SMOKING CESSATION THERAPY
     Dosage: UNK
     Route: 048
     Dates: start: 20101201, end: 20110301

REACTIONS (5)
  - NARCOLEPSY [None]
  - BALANCE DISORDER [None]
  - MALAISE [None]
  - DYSARTHRIA [None]
  - PARAESTHESIA [None]
